FAERS Safety Report 4271977-2 (Version None)
Quarter: 2004Q1

REPORT INFORMATION
  Report Type: 
  Country: None (occurrence: None)
  Receive Date: 20040115
  Receipt Date: 20020722
  Transmission Date: 20041129
  Serious: Yes (Other)
  Sender: FDA-Public Use
  Company Number: US-BRISTOL-MYERS SQUIBB COMPANY-11959384

PATIENT
  Age: 70 Year
  Sex: Male

DRUGS (8)
  1. PRAVASTATIN SODIUM [Suspect]
     Dosage: MOST RECENT DOSE PRIOR TO EVENT JUN-2002
     Route: 048
     Dates: start: 20011126
  2. GATIFLOXACIN [Suspect]
     Route: 048
     Dates: start: 20011211, end: 20020601
  3. GLUCOPHAGE [Concomitant]
     Dosage: HAD PREVIOUSLY BEEN ON 1500MG DAILY AT TIME OF HIS MI FOR THE STUDY
     Route: 048
  4. ASPIRIN [Concomitant]
     Route: 048
  5. NORVASC [Concomitant]
     Route: 048
  6. METOPROLOL [Concomitant]
     Route: 048
  7. ISOSORBIDE [Concomitant]
     Route: 048
  8. GLYBURIDE [Concomitant]
     Route: 048

REACTIONS (4)
  - BLOOD GLUCOSE INCREASED [None]
  - GLYCOSYLATED HAEMOGLOBIN INCREASED [None]
  - HYPERHIDROSIS [None]
  - HYPOGLYCAEMIA [None]
